FAERS Safety Report 11996082 (Version 1)
Quarter: 2016Q1

REPORT INFORMATION
  Report Type: Report from Study
  Country: DE (occurrence: DE)
  Receive Date: 20160203
  Receipt Date: 20160203
  Transmission Date: 20160526
  Serious: Yes (Hospitalization)
  Sender: FDA-Public Use
  Company Number: DE-ABBVIE-16K-062-1548506-00

PATIENT
  Age: 84 Year
  Sex: Female

DRUGS (9)
  1. ROACTEMRA [Concomitant]
     Active Substance: TOCILIZUMAB
     Indication: PRODUCT USED FOR UNKNOWN INDICATION
     Dates: start: 200910, end: 201005
  2. ENBREL [Concomitant]
     Active Substance: ETANERCEPT
     Indication: PRODUCT USED FOR UNKNOWN INDICATION
     Dates: start: 200508, end: 200509
  3. MABTHERA [Concomitant]
     Active Substance: RITUXIMAB
     Indication: PRODUCT USED FOR UNKNOWN INDICATION
     Dates: start: 200608
  4. MABTHERA [Concomitant]
     Active Substance: RITUXIMAB
     Dates: start: 201102
  5. CIMZIA [Concomitant]
     Active Substance: CERTOLIZUMAB PEGOL
     Indication: PRODUCT USED FOR UNKNOWN INDICATION
     Dates: start: 201009, end: 201101
  6. MTX [Concomitant]
     Active Substance: METHOTREXATE SODIUM
     Indication: PRODUCT USED FOR UNKNOWN INDICATION
     Dates: start: 199308, end: 200804
  7. ORENCIA [Concomitant]
     Active Substance: ABATACEPT
     Indication: PRODUCT USED FOR UNKNOWN INDICATION
     Dates: start: 200901, end: 200905
  8. MABTHERA [Concomitant]
     Active Substance: RITUXIMAB
     Dates: start: 201207
  9. HUMIRA [Suspect]
     Active Substance: ADALIMUMAB
     Indication: RHEUMATOID ARTHRITIS
     Route: 058
     Dates: start: 200501, end: 200507

REACTIONS (5)
  - Vertebroplasty [Unknown]
  - Fall [Unknown]
  - Sciatica [Unknown]
  - Lumbar spinal stenosis [Unknown]
  - Internal fixation of fracture [Unknown]

NARRATIVE: CASE EVENT DATE: 20150401
